FAERS Safety Report 18387919 (Version 1)
Quarter: 2020Q4

REPORT INFORMATION
  Report Type: Spontaneous
  Country: US (occurrence: US)
  Receive Date: 20201015
  Receipt Date: 20201015
  Transmission Date: 20210114
  Serious: Yes (Other)
  Sender: FDA-Public Use
  Company Number: US-ELI_LILLY_AND_COMPANY-US202010002456

PATIENT
  Sex: Male

DRUGS (3)
  1. METFORMIN [Concomitant]
     Active Substance: METFORMIN HYDROCHLORIDE
     Indication: TYPE 2 DIABETES MELLITUS
  2. BASAGLAR [Suspect]
     Active Substance: INSULIN GLARGINE
     Indication: TYPE 2 DIABETES MELLITUS
     Dosage: 23 U, DAILY (PRN)
     Route: 065
     Dates: start: 2015, end: 202005
  3. BASAGLAR [Suspect]
     Active Substance: INSULIN GLARGINE
     Dosage: 23 U, DAILY (PRN)
     Route: 065

REACTIONS (5)
  - Hyperkeratosis [Recovering/Resolving]
  - Limb injury [Recovering/Resolving]
  - Intervertebral disc protrusion [Recovering/Resolving]
  - Localised infection [Recovering/Resolving]
  - Back injury [Recovering/Resolving]

NARRATIVE: CASE EVENT DATE: 202004
